FAERS Safety Report 5883885-1 (Version None)
Quarter: 2008Q3

REPORT INFORMATION
  Report Type: 
  Country: None (occurrence: None)
  Receive Date: 20080915
  Receipt Date: 20080902
  Transmission Date: 20090109
  Serious: Yes (Death, Life-Threatening)
  Sender: FDA-Public Use
  Company Number: US-ELI_LILLY_AND_COMPANY-US200806006130

PATIENT
  Age: 28 Year
  Sex: Female

DRUGS (1)
  1. XIGRIS [Suspect]
     Indication: SEPSIS
     Dosage: UNK, UNK
     Dates: start: 20080301

REACTIONS (2)
  - HAEMORRHAGE [None]
  - MULTI-ORGAN FAILURE [None]
